FAERS Safety Report 4356706-6 (Version None)
Quarter: 2004Q2

REPORT INFORMATION
  Report Type: 
  Country: None (occurrence: None)
  Receive Date: 20040507
  Receipt Date: 20040429
  Transmission Date: 20050107
  Serious: Yes (Disabling)
  Sender: FDA-Public Use
  Company Number: 203931

PATIENT
  Age: 54 Year
  Sex: Female
  Weight: 90 kg

DRUGS (8)
  1. OMALIZUMAB (OMALIZUMAB) PWDR + SOLVENT, INJECTION SOLN, 150MG [Suspect]
     Indication: ASTHMA
     Dosage: 375 MG, Q2W, SUBCUTANEOUS
     Route: 058
     Dates: start: 19990331, end: 20030213
  2. AERIUS (DESLORATADINE) [Concomitant]
  3. FORADIL [Concomitant]
  4. FLIXOTIDE (FLUTICASONE PROPIONATE) [Concomitant]
  5. ISOPTIN [Concomitant]
  6. CONDROSULF (CHONDROITIN SULFATE) SOLUTION FOR INJECTION [Concomitant]
  7. DI-ANTALVIC (ACETAMINOPHEN, PROPOXYPHENE HYDROCHLORIDE) [Concomitant]
  8. PERCUTALGINE (SALICYLAMIDE, METHYL NICOTINATE, GLYCOL SALICYLATE, DEXA [Concomitant]

REACTIONS (1)
  - RHEUMATOID ARTHRITIS [None]
